FAERS Safety Report 5891852-7 (Version None)
Quarter: 2008Q3

REPORT INFORMATION
  Report Type: 
  Country: None (occurrence: None)
  Receive Date: 20080918
  Receipt Date: 20080918
  Transmission Date: 20090109
  Serious: Yes (Other)
  Sender: FDA-Public Use
  Company Number: None

PATIENT
  Age: 46 Year
  Sex: Female
  Weight: 61.2356 kg

DRUGS (2)
  1. SYMVASTATIN -SIMVASTATIN- 20 MG RNB [Suspect]
     Indication: BLOOD CHOLESTEROL INCREASED
     Dosage: 1 TAB AT BEDTIME ONCE DAILY PO
     Route: 048
  2. HYDRPCHOLOROTHIAZIDE -HYDROCHLOROTHIAZIDE- 25 MG TEV [Suspect]
     Indication: HYPERTENSION
     Dosage: 1 TAB AT BEDTIME ONCE DAILY PO
     Route: 048

REACTIONS (12)
  - ARTHRALGIA [None]
  - BACK PAIN [None]
  - CLUMSINESS [None]
  - CONDITION AGGRAVATED [None]
  - DISCOMFORT [None]
  - DRUG INTERACTION [None]
  - FEELING ABNORMAL [None]
  - JOINT CREPITATION [None]
  - JOINT STIFFNESS [None]
  - MUSCLE TIGHTNESS [None]
  - PAIN [None]
  - PLANTAR FASCIITIS [None]
